FAERS Safety Report 21097291 (Version 4)
Quarter: 2022Q3

REPORT INFORMATION
  Report Type: Spontaneous
  Country: PL (occurrence: PL)
  Receive Date: 20220719
  Receipt Date: 20220728
  Transmission Date: 20221027
  Serious: Yes (Life-Threatening, Hospitalization, Disabling, Other)
  Sender: FDA-Public Use
  Company Number: PL-Zentiva-2022-ZT-003671

PATIENT
  Age: 59 Year
  Sex: Female

DRUGS (19)
  1. ESCITALOPRAM [Suspect]
     Active Substance: ESCITALOPRAM OXALATE
     Indication: Mental disorder
     Dosage: UNK
     Route: 065
  2. FLUOXETINE [Suspect]
     Active Substance: FLUOXETINE HYDROCHLORIDE
     Indication: Mental disorder
     Dosage: UNK
     Route: 065
  3. PREGABALIN [Suspect]
     Active Substance: PREGABALIN
     Indication: Mental disorder
     Dosage: 225 MILLIGRAM, ONCE A DAY
     Route: 048
  4. PREGABALIN [Suspect]
     Active Substance: PREGABALIN
     Indication: Mental status changes
     Dosage: 150 MILLIGRAM, ONCE A DAY
     Route: 065
  5. PREGABALIN [Suspect]
     Active Substance: PREGABALIN
     Dosage: 75 MILLIGRAM, TWO TIMES A DAY
     Route: 048
     Dates: end: 202009
  6. PREGABALIN [Suspect]
     Active Substance: PREGABALIN
     Dosage: 75 MILLIGRAM, ONCE A DAY
     Route: 065
     Dates: start: 202005, end: 202009
  7. AGOMELATINE [Suspect]
     Active Substance: AGOMELATINE
     Indication: Mental disorder
     Dosage: 25 MILLIGRAM, ONCE A DAY
     Route: 065
  8. SULPIRIDE [Suspect]
     Active Substance: SULPIRIDE
     Indication: Mental disorder
     Dosage: 50 MILLIGRAM
     Route: 065
  9. HYDROXYZINE [Suspect]
     Active Substance: HYDROXYZINE HYDROCHLORIDE
     Indication: Mental disorder
     Dosage: 25 MILLIGRAM (PNR)
     Route: 065
  10. TRAZODONE [Suspect]
     Active Substance: TRAZODONE HYDROCHLORIDE
     Indication: Product used for unknown indication
     Dosage: UNK
     Route: 065
  11. DOXEPIN [Suspect]
     Active Substance: DOXEPIN
     Indication: Product used for unknown indication
     Dosage: UNK
     Route: 065
  12. DOXYCYCLINE [Suspect]
     Active Substance: DOXYCYCLINE
     Indication: Product used for unknown indication
     Route: 065
  13. CHLORPROTHIXENE [Suspect]
     Active Substance: CHLORPROTHIXENE
     Indication: Product used for unknown indication
     Dosage: UNK
     Route: 065
  14. AMLODIPINE [Concomitant]
     Active Substance: AMLODIPINE BESYLATE
     Indication: Hypertension
     Dosage: 2.5 MILLIGRAM, (2,5 MG IN THE MORNING AND IN THE EVENING) EVERY OTHER DAY
     Route: 065
  15. MIANSERIN [Concomitant]
     Active Substance: MIANSERIN
     Indication: Product used for unknown indication
     Dosage: 30 MILLIGRAM
     Route: 065
  16. MIANSERIN [Concomitant]
     Active Substance: MIANSERIN
     Dosage: 60 MILLIGRAM, ONCE A DAY
     Route: 065
  17. NEBIVOLOL [Concomitant]
     Active Substance: NEBIVOLOL
     Indication: Hypertension
     Dosage: 5 MILLIGRAM, EVERY OTHER DAY
     Route: 065
  18. SULPIRIDE [Concomitant]
     Active Substance: SULPIRIDE
     Indication: Product used for unknown indication
     Dosage: 50 MILLIGRAM
     Route: 065
  19. HYDROXYZINE [Concomitant]
     Active Substance: HYDROXYZINE HYDROCHLORIDE
     Indication: Product used for unknown indication
     Dosage: 25 MILLIGRAM
     Route: 065

REACTIONS (20)
  - Anaphylactic reaction [Unknown]
  - Sedation complication [Recovered/Resolved]
  - Hepatic enzyme increased [Unknown]
  - Circadian rhythm sleep disorder [Unknown]
  - Anxiety [Recovering/Resolving]
  - Initial insomnia [Unknown]
  - Enuresis [Recovered/Resolved]
  - Mental impairment [Unknown]
  - Drug ineffective [Unknown]
  - Psychomotor hyperactivity [Recovering/Resolving]
  - Tremor [Unknown]
  - Insomnia [Recovering/Resolving]
  - Panic reaction [Unknown]
  - Fear [Unknown]
  - Drug intolerance [Unknown]
  - Urinary incontinence [Unknown]
  - Psychiatric symptom [Unknown]
  - Hypertension [Unknown]
  - Off label use [Unknown]
  - Product use in unapproved indication [Unknown]
